FAERS Safety Report 8765668 (Version 3)
Quarter: 2013Q2

REPORT INFORMATION
  Report Type: Report from Study
  Country: US (occurrence: US)
  Receive Date: 20120904
  Receipt Date: 20130611
  Transmission Date: 20140414
  Serious: Yes (Other)
  Sender: FDA-Public Use
  Company Number: PHEH2012US011490

PATIENT
  Age: 45 Year
  Sex: Female

DRUGS (5)
  1. EXTAVIA [Suspect]
     Indication: MULTIPLE SCLEROSIS
     Dosage: 0.125 MG, QOD
     Route: 058
  2. EXTAVIA [Suspect]
     Dosage: 0.187 MG, QOD
     Route: 058
  3. EXTAVIA [Suspect]
     Dosage: 0.25 MG, QOD
     Route: 058
     Dates: start: 20120515
  4. IBUPROFEN [Concomitant]
     Dosage: UNK UKN, UNK
  5. AVIL [Concomitant]
     Dosage: UNK UKN, UNK

REACTIONS (7)
  - Intervertebral disc protrusion [Unknown]
  - Hypoaesthesia [Recovering/Resolving]
  - Influenza like illness [Recovering/Resolving]
  - Myalgia [Recovering/Resolving]
  - Injection site pain [Recovering/Resolving]
  - Injection site erythema [Recovering/Resolving]
  - Injection site haemorrhage [Not Recovered/Not Resolved]
